FAERS Safety Report 9322284 (Version 1)
Quarter: 2013Q2

REPORT INFORMATION
  Report Type: Spontaneous
  Country: IT (occurrence: IT)
  Receive Date: 20130531
  Receipt Date: 20130531
  Transmission Date: 20140414
  Serious: Yes (Other)
  Sender: FDA-Public Use
  Company Number: IT-GLAXOSMITHKLINE-B0895425A

PATIENT
  Age: 47 Year
  Sex: Male

DRUGS (1)
  1. RYTMONORM [Suspect]
     Indication: ATRIAL FIBRILLATION
     Route: 042
     Dates: start: 20130519, end: 20130519

REACTIONS (2)
  - Cardiac arrest [Recovering/Resolving]
  - Presyncope [Recovering/Resolving]
